FAERS Safety Report 12079396 (Version 1)
Quarter: 2016Q1

REPORT INFORMATION
  Report Type: Other
  Country: US (occurrence: US)
  Receive Date: 20160216
  Receipt Date: 20160216
  Transmission Date: 20160526
  Serious: Yes (Other)
  Sender: FDA-Public Use
  Company Number: US-GUERBET LLC-1047855

PATIENT
  Age: 62 Year
  Sex: Male

DRUGS (1)
  1. LIPIODOL [Suspect]
     Active Substance: ETHIODIZED OIL
     Indication: TRANSCATHETER ARTERIAL CHEMOEMBOLISATION
     Route: 013

REACTIONS (7)
  - Condition aggravated [None]
  - Right ventricular hypertrophy [None]
  - Off label use [None]
  - Respiratory failure [Recovered/Resolved]
  - Tricuspid valve incompetence [None]
  - Pulmonary embolism [Recovered/Resolved]
  - Pulmonary hypertension [None]
